FAERS Safety Report 4318037-X (Version None)
Quarter: 2004Q1

REPORT INFORMATION
  Report Type: 
  Country: None (occurrence: None)
  Receive Date: 20040317
  Receipt Date: 20040310
  Transmission Date: 20041129
  Serious: Yes (Other)
  Sender: FDA-Public Use
  Company Number: 200413039GDDC

PATIENT
  Age: 93 Year
  Sex: Female

DRUGS (6)
  1. DAPA-TABS [Suspect]
     Indication: ESSENTIAL HYPERTENSION
     Route: 048
     Dates: end: 20030920
  2. TRITACE [Suspect]
     Indication: HYPERTENSION
     Route: 048
     Dates: start: 20030826, end: 20030920
  3. QUININE [Concomitant]
  4. PRAVASTATIN [Concomitant]
  5. ASPIRIN [Concomitant]
  6. TAMOXIFEN CITRATE [Concomitant]

REACTIONS (6)
  - ANGIONEUROTIC OEDEMA [None]
  - DYSPNOEA [None]
  - HYPONATRAEMIA [None]
  - MYOCARDIAL INFARCTION [None]
  - SILENT MYOCARDIAL INFARCTION [None]
  - TONGUE OEDEMA [None]
